FAERS Safety Report 6404210-3 (Version None)
Quarter: 2009Q4

REPORT INFORMATION
  Report Type: 
  Country: None (occurrence: None)
  Receive Date: 20091016
  Receipt Date: 20091006
  Transmission Date: 20100525
  Serious: Yes (Hospitalization)
  Sender: FDA-Public Use
  Company Number: CO-PFIZER INC-2009276276

PATIENT

DRUGS (1)
  1. ZITHROMAX [Suspect]
     Indication: TOOTH ABSCESS
     Dosage: 500 MG, 1X/DAY
     Route: 048
     Dates: start: 20090925

REACTIONS (1)
  - TOOTH ABSCESS [None]
